FAERS Safety Report 10812452 (Version 1)
Quarter: 2015Q1

REPORT INFORMATION
  Report Type: Spontaneous
  Country: US (occurrence: US)
  Receive Date: 20150218
  Receipt Date: 20150218
  Transmission Date: 20150721
  Serious: Yes (Hospitalization)
  Sender: FDA-Public Use
  Company Number: US-ROCHE-1540110

PATIENT
  Age: 63 Year
  Sex: Male

DRUGS (11)
  1. BUMEX TABLETS [Concomitant]
     Route: 048
  2. PLAVIX [Concomitant]
     Active Substance: CLOPIDOGREL BISULFATE
     Route: 048
  3. NITROSTAT [Concomitant]
     Active Substance: NITROGLYCERIN
     Indication: CHEST PAIN
     Dosage: PLACE 1 TAB UNDER TONGUE EVERY 5 MINUTES AS NEEDED
     Route: 065
  4. FISH OIL [Concomitant]
     Active Substance: FISH OIL
     Dosage: 500-100 MG CAP
     Route: 065
  5. IMDUR [Concomitant]
     Active Substance: ISOSORBIDE MONONITRATE
     Dosage: 2000
     Route: 048
  6. LUCENTIS [Suspect]
     Active Substance: RANIBIZUMAB
     Indication: DIABETIC RETINAL OEDEMA
     Dosage: OD: RIGHT EYE OS: LEFT EYE
     Route: 050
     Dates: start: 2008, end: 2015
  7. JANUVIA [Concomitant]
     Active Substance: SITAGLIPTIN PHOSPHATE
     Route: 048
  8. LASIX [Concomitant]
     Active Substance: FUROSEMIDE
     Route: 065
  9. GLUCOTROL [Concomitant]
     Active Substance: GLIPIZIDE
     Route: 065
  10. NEPHRO-VITE [Concomitant]
     Route: 065
  11. COREG [Concomitant]
     Active Substance: CARVEDILOL
     Dosage: 0.5 TABLETS (12.5 MG TOTAL) 2 (TWO) TIMES DAILY WITH MEALS
     Route: 048

REACTIONS (5)
  - Fluid overload [Recovering/Resolving]
  - Hordeolum [Unknown]
  - Pulmonary oedema [Recovering/Resolving]
  - Influenza [Unknown]
  - Hypoglycaemia [Recovering/Resolving]

NARRATIVE: CASE EVENT DATE: 20140804
